FAERS Safety Report 19767357 (Version 1)
Quarter: 2021Q3

REPORT INFORMATION
  Report Type: Spontaneous
  Country: US (occurrence: US)
  Receive Date: 20210830
  Receipt Date: 20210830
  Transmission Date: 20211014
  Serious: Yes (Other)
  Sender: FDA-Public Use
  Company Number: US-SUNOVION-2021SUN003298

PATIENT
  Sex: Female

DRUGS (1)
  1. LATUDA [Suspect]
     Active Substance: LURASIDONE HYDROCHLORIDE
     Dosage: 20 MG
     Route: 048

REACTIONS (4)
  - Fall [Unknown]
  - Facial bones fracture [Unknown]
  - Rotator cuff syndrome [Unknown]
  - Eyelid injury [Unknown]

NARRATIVE: CASE EVENT DATE: 20210817
